FAERS Safety Report 18232787 (Version 1)
Quarter: 2020Q3

REPORT INFORMATION
  Report Type: Spontaneous
  Country: US (occurrence: US)
  Receive Date: 20200904
  Receipt Date: 20200904
  Transmission Date: 20201103
  Serious: Yes (Other)
  Sender: FDA-Public Use
  Company Number: None

PATIENT
  Age: 52 Year
  Sex: Female
  Weight: 52.16 kg

DRUGS (1)
  1. ATENOLOL. [Suspect]
     Active Substance: ATENOLOL
     Indication: ATRIAL TACHYCARDIA
     Route: 048

REACTIONS (3)
  - Tachycardia [None]
  - Feeling jittery [None]
  - Nervousness [None]

NARRATIVE: CASE EVENT DATE: 20200807
